FAERS Safety Report 9555698 (Version 2)
Quarter: 2013Q3

REPORT INFORMATION
  Report Type: Report from Study
  Country: US (occurrence: US)
  Receive Date: 20130926
  Receipt Date: 20130926
  Transmission Date: 20140515
  Serious: Yes (Death, Other)
  Sender: FDA-Public Use
  Company Number: PHEH2013US003250

PATIENT
  Sex: Female

DRUGS (4)
  1. SANDOSTATIN LAR DEPOT [Suspect]
     Dosage: 30 MG, MONTHLY
  2. SANDOSTATIN LAR DEPOT [Suspect]
     Dosage: 30 MG, EVERY 3 WEEKS
  3. SANDOSTATIN LAR DEPOT [Suspect]
     Dosage: 30 MG, EVERY 2 WEEKS
  4. SUTENT [Concomitant]
     Dosage: UNK UKN, UNK

REACTIONS (19)
  - Death [Fatal]
  - Disease progression [Unknown]
  - Back pain [Unknown]
  - Weight decreased [Unknown]
  - Muscular weakness [Unknown]
  - Oedema peripheral [Unknown]
  - Pain in extremity [Unknown]
  - Skin atrophy [Unknown]
  - Purpura [Unknown]
  - Muscle spasms [Unknown]
  - Flatulence [Unknown]
  - Anaemia [Unknown]
  - Bowel movement irregularity [Unknown]
  - Fatigue [Unknown]
  - Vomiting [Unknown]
  - Abdominal distension [Unknown]
  - Abdominal pain [Unknown]
  - Diarrhoea [Unknown]
  - Therapeutic response decreased [Unknown]
